FAERS Safety Report 7521679-1 (Version None)
Quarter: 2011Q2

REPORT INFORMATION
  Report Type: 
  Country: None (occurrence: None)
  Receive Date: 20110524
  Receipt Date: 20110512
  Transmission Date: 20111010
  Serious: Yes (Hospitalization)
  Sender: FDA-Public Use
  Company Number: 2011P1005825

PATIENT
  Age: 89 Year
  Sex: Female
  Weight: 79.3795 kg

DRUGS (10)
  1. METHYLPREDNISOLONE [Suspect]
     Indication: POLYMYALGIA RHEUMATICA
     Dosage: 6 MG, BID, PO
     Route: 048
     Dates: start: 20080415
  2. PLAVIX [Concomitant]
  3. SYNTHROID [Concomitant]
  4. DIOVAN [Concomitant]
  5. COREG [Concomitant]
  6. XANAX [Concomitant]
  7. LEVEMIR (INSULIN DETEMIR, RDNA, ORIGIN) [Concomitant]
  8. HUMULIN R (HUMAN INSULIN, RDNA ORIGIN) [Concomitant]
  9. LASIX [Concomitant]
  10. ZOFRAN [Concomitant]

REACTIONS (4)
  - DYSPNOEA [None]
  - ABDOMINAL DISTENSION [None]
  - DIARRHOEA [None]
  - ABDOMINAL PAIN [None]
